FAERS Safety Report 16275222 (Version 1)
Quarter: 2019Q2

REPORT INFORMATION
  Report Type: Spontaneous
  Country: US (occurrence: US)
  Receive Date: 20190401
  Receipt Date: 20190401
  Transmission Date: 20190711
  Serious: No
  Sender: FDA-Public Use
  Company Number: None

PATIENT
  Age: 64 Year
  Sex: Female
  Weight: 58.97 kg

DRUGS (2)
  1. MUPIROCIN OINTMENT USP, 2% SIZE 22G [Suspect]
     Active Substance: MUPIROCIN
     Indication: NASAL ULCER
     Dosage: ?          QUANTITY:22 G GRAM(S);?
     Route: 045
  2. MUPIROCIN OINTMENT USP, 2% SIZE 22G [Suspect]
     Active Substance: MUPIROCIN
     Indication: MULTIPLE ALLERGIES
     Dosage: ?          QUANTITY:22 G GRAM(S);?
     Route: 045

REACTIONS (1)
  - Drug ineffective [None]
